FAERS Safety Report 4590063-5 (Version None)
Quarter: 2005Q1

REPORT INFORMATION
  Report Type: 
  Country: None (occurrence: None)
  Receive Date: 20050217
  Receipt Date: 20050217
  Transmission Date: 20050727
  Serious: Yes (Other)
  Sender: FDA-Public Use
  Company Number: None

PATIENT
  Age: 81 Year
  Sex: Male
  Weight: 60.9 kg

DRUGS (8)
  1. ACETAMINOPHEN [Suspect]
  2. A+D OINT [Concomitant]
  3. TIMOLOL 0.25% SOLN, OPH [Concomitant]
  4. PILOCARPINE HCL 0.5% SOLN, OPH [Concomitant]
  5. MILK OF MAGNESIA SUSP [Concomitant]
  6. CASTOR OIL/PERUVIAN BALSAM/TRYPSUN AEROSOL [Concomitant]
  7. SENNA CONC [Concomitant]
  8. ASPIRIN [Concomitant]

REACTIONS (1)
  - HYPERSENSITIVITY [None]
